FAERS Safety Report 22166826 (Version 1)
Quarter: 2023Q2

REPORT INFORMATION
  Report Type: Spontaneous
  Country: US (occurrence: None)
  Receive Date: 20230401
  Receipt Date: 20230401
  Transmission Date: 20230722
  Serious: Yes (Other)
  Sender: FDA-Public Use
  Company Number: None

PATIENT
  Age: 28 Year
  Sex: Female

DRUGS (1)
  1. KOSAS REVEALER SKIN-IMPROVING FOUNDATION BROAD SPECTRUM SPF-25 LIGHT M [Suspect]
     Active Substance: ZINC OXIDE
     Indication: Skin cosmetic procedure
     Dates: start: 20220801, end: 20230401

REACTIONS (3)
  - Dermatitis [None]
  - Swelling of eyelid [None]
  - Product contamination microbial [None]

NARRATIVE: CASE EVENT DATE: 20230301
